FAERS Safety Report 12423567 (Version 1)
Quarter: 2016Q2

REPORT INFORMATION
  Report Type: Spontaneous
  Country: US (occurrence: None)
  Receive Date: 20160531
  Receipt Date: 20160531
  Transmission Date: 20160815
  Serious: No
  Sender: FDA-Public Use
  Company Number: None

PATIENT
  Age: 60 Year
  Sex: Female
  Weight: 88.45 kg

DRUGS (10)
  1. VITAMIN D [Concomitant]
     Active Substance: CHOLECALCIFEROL
  2. PREDNISONE. [Concomitant]
     Active Substance: PREDNISONE
  3. PRO-BIOTIC [Concomitant]
  4. SYNTHROID [Concomitant]
     Active Substance: LEVOTHYROXINE SODIUM
  5. OXYCODONE [Concomitant]
     Active Substance: OXYCODONE
  6. OXYGEN. [Concomitant]
     Active Substance: OXYGEN
  7. MULTI-VITAMIN [Concomitant]
     Active Substance: .ALPHA.-TOCOPHEROL ACETATE, DL-\ASCORBIC ACID\CYANOCOBALAMIN\FLUORIDE ION\FOLIC ACID\NIACIN\PYRIDOXINE\RIBOFLAVIN\THIAMINE\VITAMIN A\VITAMIN D
  8. BISCODYL [Concomitant]
     Active Substance: BISACODYL
  9. OFEV [Suspect]
     Active Substance: NINTEDANIB
     Indication: IDIOPATHIC PULMONARY FIBROSIS
     Route: 048
     Dates: start: 20160504
  10. LIOTHYRONINE [Concomitant]
     Active Substance: LIOTHYRONINE

REACTIONS (4)
  - Alopecia [None]
  - Headache [None]
  - Constipation [None]
  - Abdominal pain [None]

NARRATIVE: CASE EVENT DATE: 20160516
